FAERS Safety Report 10146528 (Version 1)
Quarter: 2014Q2

REPORT INFORMATION
  Report Type: Spontaneous
  Country: CN (occurrence: CN)
  Receive Date: 20140501
  Receipt Date: 20140501
  Transmission Date: 20141212
  Serious: Yes (Other)
  Sender: FDA-Public Use
  Company Number: CN-B.I. PHARMACEUTICALS,INC./RIDGEFIELD-2014-BI-19309YA

PATIENT
  Sex: 0

DRUGS (1)
  1. HARNAL [Suspect]
     Indication: PRODUCT USED FOR UNKNOWN INDICATION
     Dosage: FORMULATION: MODIFIED-RELEASE CAPSULE, HARD
     Route: 048

REACTIONS (1)
  - Gait disturbance [Unknown]
